FAERS Safety Report 19260575 (Version 1)
Quarter: 2021Q2

REPORT INFORMATION
  Report Type: Spontaneous
  Country: US (occurrence: US)
  Receive Date: 20210514
  Receipt Date: 20210514
  Transmission Date: 20210717
  Serious: No
  Sender: FDA-Public Use
  Company Number: US-SUN PHARMACEUTICAL INDUSTRIES LTD-2020R1-263931

PATIENT
  Sex: Female

DRUGS (1)
  1. ILUMYA [Suspect]
     Active Substance: TILDRAKIZUMAB-ASMN
     Indication: PSORIASIS
     Dosage: WK 0, WK 4, THEN EVERY 12 WKS
     Route: 058

REACTIONS (5)
  - Product administration interrupted [Unknown]
  - Drug ineffective [Unknown]
  - Dizziness [Unknown]
  - Treatment failure [Unknown]
  - Fatigue [Unknown]
